FAERS Safety Report 7419210-4 (Version None)
Quarter: 2011Q2

REPORT INFORMATION
  Report Type: 
  Country: None (occurrence: None)
  Receive Date: 20110415
  Receipt Date: 20110406
  Transmission Date: 20111010
  Serious: Yes (Hospitalization)
  Sender: FDA-Public Use
  Company Number: US-ASTRAZENECA-2010SE49738

PATIENT
  Age: 40 Year
  Sex: Female
  Weight: 63.5 kg

DRUGS (9)
  1. SEROQUEL [Suspect]
     Indication: ANXIETY
     Route: 048
  2. ANTIHISTAMINE [Suspect]
     Route: 065
  3. SEROQUEL [Suspect]
     Route: 048
     Dates: start: 20110401
  4. LORTAB [Concomitant]
     Indication: PAIN
  5. SEROQUEL [Suspect]
     Route: 048
     Dates: start: 20080101, end: 20110328
  6. SEROQUEL [Suspect]
     Route: 048
     Dates: start: 20110401
  7. SEROQUEL [Suspect]
     Indication: SLEEP DISORDER
     Route: 048
  8. SEROQUEL [Suspect]
     Route: 048
     Dates: start: 20080101, end: 20110328
  9. XANAX [Concomitant]
     Indication: ANXIETY

REACTIONS (9)
  - UNRESPONSIVE TO STIMULI [None]
  - INSOMNIA [None]
  - AMNESIA [None]
  - RENAL FAILURE [None]
  - DRUG DOSE OMISSION [None]
  - NERVOUSNESS [None]
  - HEART RATE INCREASED [None]
  - BACK PAIN [None]
  - ANXIETY [None]
